FAERS Safety Report 24598721 (Version 3)
Quarter: 2024Q4

REPORT INFORMATION
  Report Type: Spontaneous
  Country: US (occurrence: US)
  Receive Date: 20241110
  Receipt Date: 20241223
  Transmission Date: 20250114
  Serious: No
  Sender: SANOFI AVENTIS
  Company Number: US-SA-2024SA310749

PATIENT
  Age: 41 Year
  Sex: Female

DRUGS (2)
  1. DUPIXENT [Suspect]
     Active Substance: DUPILUMAB
     Indication: Eosinophilic oesophagitis
     Dosage: 300 MG, QW
     Route: 058
     Dates: start: 20241008
  2. CREON [Concomitant]
     Active Substance: PANCRELIPASE AMYLASE\PANCRELIPASE LIPASE\PANCRELIPASE PROTEASE
     Dosage: UNK

REACTIONS (12)
  - Fatigue [Unknown]
  - Dry throat [Unknown]
  - Pain [Unknown]
  - Migraine [Unknown]
  - Myalgia [Unknown]
  - Pharyngeal swelling [Unknown]
  - Injection site pain [Recovered/Resolved]
  - Dry eye [Unknown]
  - Mental disorder [Unknown]
  - General physical health deterioration [Unknown]
  - Eosinophilic oesophagitis [Unknown]
  - Product use in unapproved indication [Unknown]

NARRATIVE: CASE EVENT DATE: 20240101
